FAERS Safety Report 10286971 (Version 3)
Quarter: 2014Q3

REPORT INFORMATION
  Report Type: Spontaneous
  Country: GB (occurrence: None)
  Receive Date: 20140707
  Receipt Date: 20140724
  Transmission Date: 20150326
  Serious: Yes (Other)
  Sender: FDA-Public Use
  Company Number: AUR-APL-2014-07006

PATIENT
  Age: 76 Year
  Sex: Male
  Weight: 65 kg

DRUGS (14)
  1. ASPIRIN (ACETYLSALCYLIC ACID) [Concomitant]
  2. PARACETAMOL (PARACETMOL) [Concomitant]
  3. DOUBLEBASE (ISOPROPYL MYRISTATE, PARAFFIN, LIQUID) [Concomitant]
  4. E45 (PARAFFIN, LIQUID, WHITE SOFT PARAFFIN WOOL FAT) [Concomitant]
  5. PROCHLORPERAZINE (PROCHLORPERAZINE) [Concomitant]
     Active Substance: PROCHLORPERAZINE
  6. EPAXAL (HEPATITIS A VACCINE) [Concomitant]
  7. FENBID (IBUPROFEN) [Concomitant]
  8. OMEPRAZOLE (OMEPRAZOLE) [Concomitant]
     Active Substance: OMEPRAZOLE
  9. ALFUZOSIN (ALFUZOSIN) [Concomitant]
     Active Substance: ALFUZOSIN
  10. BISACODYL (BISACODYL) [Concomitant]
     Active Substance: BISACODYL
  11. METFORMIN (METFORMIN) UNKNOWN, UNKNOWN [Suspect]
     Active Substance: METFORMIN HYDROCHLORIDE
     Indication: PRODUCT USED FOR UNKNOWN INDICATION
     Dates: start: 20140303
  12. LOSARTAN (LOSARTAN) [Concomitant]
     Active Substance: LOSARTAN
  13. MOVICOL /01625101/ (MACROGOL, POTASSIUM CHLORIDE, SODIUM BICARBONATE) [Concomitant]
  14. NAPROXEN /00256202/(NAPROXEN SODUM) [Concomitant]

REACTIONS (1)
  - Rash macular [None]

NARRATIVE: CASE EVENT DATE: 20140616
